FAERS Safety Report 8839511 (Version 1)
Quarter: 2012Q4

REPORT INFORMATION
  Report Type: Spontaneous
  Country: US (occurrence: None)
  Receive Date: 20121012
  Receipt Date: 20121012
  Transmission Date: 20130627
  Serious: Yes (Life-Threatening, Hospitalization)
  Sender: FDA-Public Use
  Company Number: None

PATIENT
  Age: 75 Year
  Sex: Female
  Weight: 109.77 kg

DRUGS (1)
  1. BYETTA [Suspect]
     Route: 058

REACTIONS (3)
  - Pancreatitis acute [None]
  - Pancreatitis haemorrhagic [None]
  - Cholelithiasis [None]
